FAERS Safety Report 9854245 (Version 4)
Quarter: 2014Q1

REPORT INFORMATION
  Report Type: Spontaneous
  Country: US (occurrence: US)
  Receive Date: 20140130
  Receipt Date: 20140312
  Transmission Date: 20141002
  Serious: Yes (Other)
  Sender: FDA-Public Use
  Company Number: US-ROCHE-1340343

PATIENT
  Sex: Female

DRUGS (10)
  1. XOLAIR [Suspect]
     Indication: ASTHMA
     Route: 058
     Dates: start: 20140120
  2. XYZAL [Concomitant]
     Route: 048
  3. EXCEDRIN (UNITED STATES) [Concomitant]
     Dosage: AS NEEDED
     Route: 048
  4. VENTOLIN [Concomitant]
     Dosage: 2 PUFFS AS NEEDED
     Route: 065
  5. PULMICORT [Concomitant]
     Dosage: 2 PUFFS TWICE A DAY
     Route: 065
  6. LEXAPRO [Concomitant]
     Route: 048
  7. SUDAFED [Concomitant]
     Dosage: AS NEEDED
     Route: 048
  8. EPIPEN [Concomitant]
     Dosage: AS NEEDED
     Route: 065
  9. OMNARIS [Concomitant]
     Dosage: 2 SPRAYS IN EACH NOSTRIL DAILY
     Route: 045
  10. SINGULAIR [Concomitant]
     Route: 048

REACTIONS (3)
  - Headache [Unknown]
  - Pruritus [Unknown]
  - Mass [Unknown]
